FAERS Safety Report 4435001-0 (Version None)
Quarter: 2004Q3

REPORT INFORMATION
  Report Type: 
  Country: None (occurrence: None)
  Receive Date: 20040726
  Receipt Date: 20040427
  Transmission Date: 20050211
  Serious: No
  Sender: FDA-Public Use
  Company Number: USA040260378

PATIENT
  Age: 78 Year
  Sex: Female
  Weight: 60 kg

DRUGS (4)
  1. FORTEO [Suspect]
     Indication: OSTEOPOROSIS
     Dosage: 20 UG/1 DAY
     Dates: start: 20040206
  2. PLAVIX [Concomitant]
  3. ASPIRIN [Concomitant]
  4. CORTICOSTEROID NOS [Concomitant]

REACTIONS (7)
  - ATRIAL FIBRILLATION [None]
  - ERYTHEMA [None]
  - HEART RATE INCREASED [None]
  - HEART RATE IRREGULAR [None]
  - MUSCLE CRAMP [None]
  - PALPITATIONS [None]
  - SKIN WARM [None]
